FAERS Safety Report 22654863 (Version 1)
Quarter: 2023Q2

REPORT INFORMATION
  Report Type: Report from Study
  Country: US (occurrence: US)
  Receive Date: 20230629
  Receipt Date: 20230629
  Transmission Date: 20230722
  Serious: Yes (Other)
  Sender: FDA-Public Use
  Company Number: US-ARGENX-2023-ARGX-US002090

PATIENT

DRUGS (1)
  1. VYVGART [Suspect]
     Active Substance: EFGARTIGIMOD ALFA-FCAB
     Indication: Myasthenia gravis
     Dosage: 400 MG, 1/WEEK
     Route: 042
     Dates: start: 202206

REACTIONS (5)
  - Choking [Unknown]
  - Diplopia [Unknown]
  - Eyelid ptosis [Unknown]
  - Mastication disorder [Unknown]
  - Fatigue [Unknown]
